FAERS Safety Report 15479347 (Version 1)
Quarter: 2018Q4

REPORT INFORMATION
  Report Type: Spontaneous
  Country: GB (occurrence: GB)
  Receive Date: 20181009
  Receipt Date: 20181009
  Transmission Date: 20190205
  Serious: Yes (Other)
  Sender: FDA-Public Use
  Company Number: GB-IMPAX LABORATORIES, INC-2018-IPXL-03252

PATIENT
  Age: 63 Year
  Sex: Female

DRUGS (5)
  1. ATORVASTATIN [Suspect]
     Active Substance: ATORVASTATIN
     Indication: PRODUCT USED FOR UNKNOWN INDICATION
     Dosage: UNK
     Route: 065
  2. MILK [Concomitant]
     Active Substance: COW MILK
     Indication: PRODUCT USED FOR UNKNOWN INDICATION
     Dosage: UNK, ACCOUNTED FOR 300 MG OF CALCIUM PER DAY
     Route: 065
  3. OMEPRAZOLE DELAYED RELEASE [Suspect]
     Active Substance: OMEPRAZOLE
     Indication: PRODUCT USED FOR UNKNOWN INDICATION
     Dosage: UNK
     Route: 065
  4. ASPIRIN. [Suspect]
     Active Substance: ASPIRIN
     Indication: PRODUCT USED FOR UNKNOWN INDICATION
     Dosage: UNK
     Route: 065
  5. BISOPROLOL [Suspect]
     Active Substance: BISOPROLOL
     Indication: PRODUCT USED FOR UNKNOWN INDICATION
     Dosage: UNK
     Route: 065

REACTIONS (5)
  - Serum procollagen type I N-terminal propeptide increased [Unknown]
  - Lumbar vertebral fracture [Unknown]
  - Osteoporosis [Unknown]
  - Vitamin D deficiency [Unknown]
  - Blood alkaline phosphatase increased [Unknown]
